FAERS Safety Report 5857830-9 (Version None)
Quarter: 2008Q3

REPORT INFORMATION
  Report Type: 
  Country: None (occurrence: None)
  Receive Date: 20080822
  Receipt Date: 20080814
  Transmission Date: 20090109
  Serious: Yes (Other)
  Sender: FDA-Public Use
  Company Number: GXKR2008DK07247

PATIENT
  Age: 84 Year
  Sex: Male

DRUGS (5)
  1. PRAVASTATIN [Suspect]
     Indication: HYPERCHOLESTEROLAEMIA
     Dosage: , ORAL
     Route: 048
  2. ESOMEPRAZOLE (ESOMEPRAZOLE) UNKNOWN [Suspect]
     Indication: HYPERTENSION
     Dosage: , ORAL
     Route: 048
  3. BENDROFLUMETHIAZIDE W/POTASSIUMC HLORIDE (BENDROFLUMETHIAZIDE, POTASSI [Concomitant]
  4. SOTALOL (SOTALOL) UNKNOWN, 40 MG [Concomitant]
  5. MAGNYL ^DAK^ (ACETYLSALICYLIC ACID, MAGNESIUM OXIDE) GASTRO-RESISTANT [Concomitant]

REACTIONS (4)
  - ATRIAL FIBRILLATION [None]
  - MYOSITIS [None]
  - PNEUMONIA [None]
  - RHABDOMYOLYSIS [None]
